FAERS Safety Report 22247675 (Version 1)
Quarter: 2023Q2

REPORT INFORMATION
  Report Type: Spontaneous
  Country: US (occurrence: US)
  Receive Date: 20230425
  Receipt Date: 20230425
  Transmission Date: 20230721
  Serious: No
  Sender: FDA-Public Use
  Company Number: US-Melinta Therapeutics, LLC-US-MLNT-22-00333

PATIENT
  Sex: Male

DRUGS (2)
  1. TOPROL XL [Suspect]
     Active Substance: METOPROLOL SUCCINATE
     Indication: Hypertension
     Route: 048
  2. METOPROLOL SUCCINATE [Suspect]
     Active Substance: METOPROLOL SUCCINATE
     Indication: Hypertension
     Dosage: NOT PROVIDED
     Route: 065

REACTIONS (5)
  - Palpitations [Unknown]
  - Anxiety [Unknown]
  - Adverse event [Unknown]
  - Drug ineffective [Unknown]
  - Product quality issue [Unknown]
